FAERS Safety Report 20661367 (Version 1)
Quarter: 2022Q2

REPORT INFORMATION
  Report Type: Spontaneous
  Country: US (occurrence: US)
  Receive Date: 20220401
  Receipt Date: 20220401
  Transmission Date: 20220721
  Serious: Yes (Other)
  Sender: FDA-Public Use
  Company Number: US-JNJFOC-20220351037

PATIENT
  Age: 73 Year
  Sex: Male

DRUGS (10)
  1. ZYTIGA [Suspect]
     Active Substance: ABIRATERONE ACETATE
     Indication: Product used for unknown indication
     Route: 048
     Dates: start: 202002
  2. FIRMAGON [Concomitant]
     Active Substance: DEGARELIX ACETATE
     Dates: start: 202103
  3. NUBEQA [Concomitant]
     Active Substance: DAROLUTAMIDE
     Dates: start: 202005
  4. NUBEQA [Concomitant]
     Active Substance: DAROLUTAMIDE
     Dates: start: 202102
  5. TAXOTERE [Concomitant]
     Active Substance: DOCETAXEL
     Dates: start: 20210601
  6. LUPRON [Concomitant]
     Active Substance: LEUPROLIDE ACETATE
     Dates: start: 200508
  7. LUPRON [Concomitant]
     Active Substance: LEUPROLIDE ACETATE
     Dates: start: 201112, end: 202008
  8. LUPRON [Concomitant]
     Active Substance: LEUPROLIDE ACETATE
     Dates: start: 202105
  9. CASODEX [Concomitant]
     Active Substance: BICALUTAMIDE
     Dates: start: 200508, end: 201807
  10. CASODEX [Concomitant]
     Active Substance: BICALUTAMIDE
     Dates: start: 201809

REACTIONS (3)
  - Cerebrovascular accident [Unknown]
  - Metastases to bone [Unknown]
  - Prostatic specific antigen increased [Unknown]

NARRATIVE: CASE EVENT DATE: 20200301
